FAERS Safety Report 23247479 (Version 1)
Quarter: 2023Q4

REPORT INFORMATION
  Report Type: Spontaneous
  Country: US (occurrence: US)
  Receive Date: 20231130
  Receipt Date: 20231130
  Transmission Date: 20240109
  Serious: No
  Sender: FDA-Public Use
  Company Number: US-APELLIS PHARMACEUTICALS-APL-2023-003218

PATIENT
  Sex: Male

DRUGS (6)
  1. SYFOVRE [Suspect]
     Active Substance: PEGCETACOPLAN
     Indication: Dry age-related macular degeneration
     Dosage: OD
  2. SYFOVRE [Suspect]
     Active Substance: PEGCETACOPLAN
     Dosage: OD
  3. SYFOVRE [Suspect]
     Active Substance: PEGCETACOPLAN
     Dosage: OD
  4. SYFOVRE [Suspect]
     Active Substance: PEGCETACOPLAN
     Dosage: OS
  5. SYFOVRE [Suspect]
     Active Substance: PEGCETACOPLAN
     Dosage: OS
  6. SYFOVRE [Suspect]
     Active Substance: PEGCETACOPLAN
     Dosage: OS

REACTIONS (2)
  - Disease progression [Unknown]
  - Drug ineffective [Unknown]
